FAERS Safety Report 7210222-2 (Version None)
Quarter: 2011Q1

REPORT INFORMATION
  Report Type: 
  Country: None (occurrence: None)
  Receive Date: 20110105
  Receipt Date: 20101230
  Transmission Date: 20110831
  Serious: Yes (Other)
  Sender: FDA-Public Use
  Company Number: DE-JNJFOC-20110100137

PATIENT
  Sex: Female
  Weight: 55 kg

DRUGS (1)
  1. CONCERTA [Suspect]
     Indication: ILL-DEFINED DISORDER
     Route: 048

REACTIONS (3)
  - DIZZINESS [None]
  - OVERDOSE [None]
  - VENTRICULAR TACHYCARDIA [None]
